FAERS Safety Report 9101009 (Version 1)
Quarter: 2013Q1

REPORT INFORMATION
  Report Type: Spontaneous
  Country: FR (occurrence: FR)
  Receive Date: 20130215
  Receipt Date: 20130215
  Transmission Date: 20140127
  Serious: Yes (Hospitalization)
  Sender: FDA-Public Use
  Company Number: FR-PFIZER INC-2013055845

PATIENT
  Age: 67 Year
  Sex: Male

DRUGS (3)
  1. DALACINE [Suspect]
     Indication: WOUND INFECTION STAPHYLOCOCCAL
     Dosage: 600 MG, 3X/DAY
     Route: 048
     Dates: start: 20120530, end: 20120627
  2. OFLOCET [Suspect]
     Indication: WOUND INFECTION STAPHYLOCOCCAL
     Dosage: 200 MG, 2X/DAY, IN THE MORNING AND EVENING
     Route: 048
     Dates: start: 20120521, end: 20120627
  3. ZOPICLONE [Concomitant]
     Dosage: 7.5 UNK, 1X/DAY

REACTIONS (2)
  - Renal failure [Unknown]
  - Dermatitis exfoliative [Recovered/Resolved]
